FAERS Safety Report 6282859-9 (Version None)
Quarter: 2009Q3

REPORT INFORMATION
  Report Type: 
  Country: None (occurrence: None)
  Receive Date: 20090722
  Receipt Date: 20090709
  Transmission Date: 20100115
  Serious: Yes (Life-Threatening)
  Sender: FDA-Public Use
  Company Number: 321697

PATIENT
  Age: 76 Year
  Sex: Female

DRUGS (3)
  1. SODIUM LACTATE IN PLASTIC CONTAINER [Suspect]
     Indication: HYPOTENSION
     Dosage: 500 CC, ONCE, OTHER
     Route: 050
     Dates: start: 20090706, end: 20090706
  2. SODIUM LACTATE IN PLASTIC CONTAINER [Suspect]
     Indication: PROPHYLAXIS
     Dosage: 500 CC, ONCE, OTHER
     Route: 050
     Dates: start: 20090706, end: 20090706
  3. ANESTHETICS NOS (ANESTHESIA PROCEDURE) [Concomitant]

REACTIONS (6)
  - AIR EMBOLISM [None]
  - BRADYCARDIA [None]
  - CARDIO-RESPIRATORY ARREST [None]
  - CONFUSIONAL STATE [None]
  - RESPIRATORY ARREST [None]
  - UNRESPONSIVE TO STIMULI [None]
